FAERS Safety Report 23591739 (Version 6)
Quarter: 2024Q2

REPORT INFORMATION
  Report Type: Report from Study
  Country: US (occurrence: US)
  Receive Date: 20240304
  Receipt Date: 20240618
  Transmission Date: 20240715
  Serious: Yes (Death, Hospitalization, Other)
  Sender: FDA-Public Use
  Company Number: US-TAKEDA-2024TUS019584

PATIENT
  Age: 77 Year
  Sex: Male

DRUGS (4)
  1. TEDUGLUTIDE [Suspect]
     Active Substance: TEDUGLUTIDE
     Indication: Short-bowel syndrome
     Dosage: 0.47 MILLILITER, QD
     Route: 058
     Dates: start: 202401
  2. TEDUGLUTIDE [Suspect]
     Active Substance: TEDUGLUTIDE
     Indication: Short-bowel syndrome
     Dosage: 0.47 MILLILITER, QD
     Route: 058
     Dates: start: 202401
  3. TEDUGLUTIDE [Suspect]
     Active Substance: TEDUGLUTIDE
     Indication: Short-bowel syndrome
     Dosage: 0.47 MILLILITER, QD
     Route: 058
     Dates: start: 202401
  4. TEDUGLUTIDE [Suspect]
     Active Substance: TEDUGLUTIDE
     Indication: Short-bowel syndrome
     Dosage: 0.47 MILLILITER, QD
     Route: 058
     Dates: start: 202401

REACTIONS (7)
  - Death [Fatal]
  - COVID-19 [Unknown]
  - Stoma site haemorrhage [Unknown]
  - Gallbladder disorder [Unknown]
  - Pancreatic cyst [Unknown]
  - Hepatic cyst [Unknown]
  - Stoma site hypergranulation [Unknown]

NARRATIVE: CASE EVENT DATE: 20240301
